FAERS Safety Report 19901191 (Version 1)
Quarter: 2021Q3

REPORT INFORMATION
  Report Type: Spontaneous
  Country: US (occurrence: US)
  Receive Date: 20210929
  Receipt Date: 20210929
  Transmission Date: 20211014
  Serious: No
  Sender: FDA-Public Use
  Company Number: None

PATIENT

DRUGS (2)
  1. CERNER SYSTEM [Concomitant]
     Active Substance: DEVICE
  2. TRIAMTERENE AND HYDROCHLOROTHIAZIDE [Suspect]
     Active Substance: HYDROCHLOROTHIAZIDE\TRIAMTERENE

REACTIONS (5)
  - Device dispensing error [None]
  - Device computer issue [None]
  - Drug monitoring procedure not performed [None]
  - Intercepted product administration error [None]
  - Product dispensing error [None]
